FAERS Safety Report 7839378 (Version 2)
Quarter: 2012Q4

REPORT INFORMATION
  Report Type: 
  Country: US (occurrence: US)
  Receive Date: 20110303
  Receipt Date: 20120912
  Transmission Date: 20130627
  Serious: No
  Sender: FDA-Public Use
  Company Number: US-ASTRAZENECA-2011SE09896

PATIENT
  Age: 42 Year
  Sex: Male
  Weight: 93 kg

DRUGS (14)
  1. SEROQUEL XR [Suspect]
     Indication: SCHIZOPHRENIA
     Route: 048
     Dates: start: 200901, end: 201004
  2. SEROQUEL XR [Suspect]
     Indication: DEPRESSION
     Route: 048
     Dates: start: 200901, end: 201004
  3. SEROQUEL XR [Suspect]
     Indication: BIPOLAR DISORDER
     Route: 048
     Dates: start: 200901, end: 201004
  4. SEROQUEL XR [Suspect]
     Indication: SCHIZOPHRENIA
     Route: 048
     Dates: start: 201001
  5. SEROQUEL XR [Suspect]
     Indication: DEPRESSION
     Route: 048
     Dates: start: 201001
  6. SEROQUEL XR [Suspect]
     Indication: BIPOLAR DISORDER
     Route: 048
     Dates: start: 201001
  7. SEROQUEL XR [Suspect]
     Indication: SCHIZOPHRENIA
     Route: 048
  8. SEROQUEL XR [Suspect]
     Indication: DEPRESSION
     Route: 048
  9. SEROQUEL XR [Suspect]
     Indication: BIPOLAR DISORDER
     Route: 048
  10. LISINOPRIL HCTZ [Suspect]
     Indication: BLOOD PRESSURE ABNORMAL
     Dosage: DAILY DOSE OF 20/25 MG
     Route: 048
  11. AMLODIPINE [Concomitant]
  12. CITALOPRAM [Concomitant]
  13. AMLODIPINE BESYLATE [Concomitant]
     Indication: HYPERTENSION
  14. CELEXA [Concomitant]

REACTIONS (6)
  - Mental disorder [Unknown]
  - Malaise [Unknown]
  - Insomnia [Unknown]
  - Emotional disorder [Unknown]
  - Anxiety [Unknown]
  - Drug dose omission [Unknown]
